FAERS Safety Report 14774571 (Version 2)
Quarter: 2018Q2

REPORT INFORMATION
  Report Type: Spontaneous
  Country: FR (occurrence: FR)
  Receive Date: 20180418
  Receipt Date: 20180423
  Transmission Date: 20180711
  Serious: Yes (Other)
  Sender: FDA-Public Use
  Company Number: FR-PFIZER INC-2018152565

PATIENT
  Age: 30 Year
  Sex: Female

DRUGS (4)
  1. ETOPOSIDE. [Suspect]
     Active Substance: ETOPOSIDE
     Indication: BENIGN HYDATIDIFORM MOLE
     Dosage: 120 MG/M2, TOTAL
  2. METHOTREXATE SODIUM. [Suspect]
     Active Substance: METHOTREXATE SODIUM
     Indication: BENIGN HYDATIDIFORM MOLE
     Dosage: 800 MG/M2, TOTAL
  3. CARBOPLATIN. [Suspect]
     Active Substance: CARBOPLATIN
     Indication: BENIGN HYDATIDIFORM MOLE
     Dosage: 400 MG/M2, TOTAL
  4. BLEOMYCIN [Suspect]
     Active Substance: BLEOMYCIN SULFATE
     Indication: BENIGN HYDATIDIFORM MOLE
     Dosage: 60 MG/M2, TOTAL

REACTIONS (2)
  - Second primary malignancy [Recovered/Resolved]
  - Acute promyelocytic leukaemia [Recovered/Resolved]
